FAERS Safety Report 22078155 (Version 2)
Quarter: 2023Q2

REPORT INFORMATION
  Report Type: Report from Study
  Country: US (occurrence: US)
  Receive Date: 20230309
  Receipt Date: 20230410
  Transmission Date: 20230721
  Serious: Yes (Hospitalization)
  Sender: FDA-Public Use
  Company Number: US-ABBVIE-4290725

PATIENT
  Age: 69 Year
  Sex: Female

DRUGS (1)
  1. RINVOQ [Suspect]
     Active Substance: UPADACITINIB
     Indication: Rheumatoid arthritis
     Dosage: FORM STRENGTH: 15 MILLIGRAM
     Route: 048
     Dates: start: 20221226, end: 20230129

REACTIONS (16)
  - Chest pain [Unknown]
  - Malaise [Unknown]
  - Musculoskeletal stiffness [Unknown]
  - Asthenia [Unknown]
  - Drug ineffective [Unknown]
  - Pain [Unknown]
  - Oropharyngeal pain [Unknown]
  - Fungal infection [Recovered/Resolved]
  - Headache [Unknown]
  - Streptococcus test positive [Recovered/Resolved]
  - Blood pressure increased [Unknown]
  - Oral fungal infection [Recovered/Resolved]
  - COVID-19 [Unknown]
  - Pain [Unknown]
  - Rheumatoid arthritis [Unknown]
  - Feeling abnormal [Unknown]

NARRATIVE: CASE EVENT DATE: 20230101
